FAERS Safety Report 16689283 (Version 1)
Quarter: 2019Q3

REPORT INFORMATION
  Report Type: Report from Study
  Country: CA (occurrence: CA)
  Receive Date: 20190809
  Receipt Date: 20190809
  Transmission Date: 20191004
  Serious: Yes (Other)
  Sender: FDA-Public Use
  Company Number: CA-UCBSA-2019032505

PATIENT
  Age: 2 Year
  Sex: Male
  Weight: 3.9 kg

DRUGS (8)
  1. MENOPUR [Concomitant]
     Active Substance: FOLLITROPIN\LUTEINIZING HORMONE
     Indication: INFERTILITY
  2. PRENATAL VITAMINS [ASCORBIC ACID;BIOTIN;MINERALS NOS;NICOTINIC ACID;RE [Concomitant]
  3. ESTRADIOL. [Concomitant]
     Active Substance: ESTRADIOL
     Indication: INFERTILITY
     Route: 048
  4. GONAL-F [Concomitant]
     Active Substance: FOLLITROPIN
     Indication: INFERTILITY
  5. LEUPROLIDE ACETATE. [Concomitant]
     Active Substance: LEUPROLIDE ACETATE
     Indication: INFERTILITY
  6. PREDNISONE. [Concomitant]
     Active Substance: PREDNISONE
     Indication: RHEUMATOID ARTHRITIS
  7. INFLUENZA VACCINE [Concomitant]
     Active Substance: INFLUENZA VIRUS VACCINE
     Indication: PRODUCT USED FOR UNKNOWN INDICATION
     Dosage: UNK
  8. CERTOLIZUMAB PEGOL [Suspect]
     Active Substance: CERTOLIZUMAB PEGOL
     Indication: RHEUMATOID ARTHRITIS
     Dosage: 200 MILLIGRAM, 2X/MONTH
     Route: 064
     Dates: start: 20151208, end: 20160607

REACTIONS (2)
  - Maternal exposure during pregnancy [Unknown]
  - Speech disorder [Unknown]

NARRATIVE: CASE EVENT DATE: 20150922
